FAERS Safety Report 8347772-1 (Version None)
Quarter: 2012Q2

REPORT INFORMATION
  Report Type: 
  Country: None (occurrence: None)
  Receive Date: 20120509
  Receipt Date: 20120501
  Transmission Date: 20120825
  Serious: Yes (Hospitalization)
  Sender: FDA-Public Use
  Company Number: US-GLAXOSMITHKLINE-A0934127A

PATIENT
  Age: 56 Year
  Sex: Female

DRUGS (5)
  1. AVASTIN [Concomitant]
  2. HERCEPTIN [Concomitant]
  3. CHEMOTHERAPY [Concomitant]
  4. ARIXTRA [Concomitant]
  5. TYKERB [Suspect]
     Indication: BREAST CANCER METASTATIC
     Dosage: 1250MG PER DAY
     Route: 048
     Dates: start: 20110617

REACTIONS (6)
  - ANAEMIA [None]
  - DIARRHOEA [None]
  - WEIGHT DECREASED [None]
  - DYSPEPSIA [None]
  - DYSPNOEA [None]
  - LUNG DISORDER [None]
